FAERS Safety Report 8452846-0 (Version None)
Quarter: 2012Q2

REPORT INFORMATION
  Report Type: 
  Country: None (occurrence: None)
  Receive Date: 20120620
  Receipt Date: 20120429
  Transmission Date: 20120825
  Serious: No
  Sender: FDA-Public Use
  Company Number: US-VERTEX PHARMACEUTICALS INC.-AE-2012-006244

PATIENT
  Sex: Male
  Weight: 86.26 kg

DRUGS (5)
  1. PEGASYS [Concomitant]
     Indication: HEPATITIS C
     Route: 058
     Dates: start: 20120205
  2. PEGASYS [Concomitant]
     Route: 058
     Dates: start: 20120421
  3. INCIVEK [Suspect]
     Indication: HEPATITIS C
     Route: 048
     Dates: start: 20120205
  4. RIBAVIRIN [Concomitant]
     Indication: HEPATITIS C
     Route: 048
     Dates: start: 20120205
  5. SUBOXONE [Concomitant]
     Indication: DEPENDENCE
     Route: 048

REACTIONS (4)
  - RASH [None]
  - PRURITUS [None]
  - PLATELET COUNT DECREASED [None]
  - BLISTER [None]
